FAERS Safety Report 10218488 (Version 3)
Quarter: 2016Q2

REPORT INFORMATION
  Report Type: Spontaneous
  Country: US (occurrence: US)
  Receive Date: 20140605
  Receipt Date: 20160502
  Transmission Date: 20160815
  Serious: Yes (Hospitalization, Disabling, Other)
  Sender: FDA-Public Use
  Company Number: US-009507513-1406USA000536

PATIENT
  Sex: Female
  Weight: 53.97 kg

DRUGS (2)
  1. GENGRAF [Concomitant]
     Active Substance: CYCLOSPORINE
     Indication: RENAL TRANSPLANT
     Dosage: UNK
     Route: 065
     Dates: start: 1995
  2. FOSAMAX [Suspect]
     Active Substance: ALENDRONATE SODIUM
     Indication: OSTEOPENIA
     Dosage: 70 MG, QOW
     Route: 048
     Dates: start: 200502, end: 20120525

REACTIONS (19)
  - Inappropriate schedule of drug administration [Unknown]
  - Osteoarthritis [Unknown]
  - Anaemia [Unknown]
  - Electrocardiogram Q waves [Unknown]
  - QRS axis abnormal [Unknown]
  - Tonsillectomy [Unknown]
  - Atypical femur fracture [Unknown]
  - Dysplasia [Unknown]
  - Osteopenia [Unknown]
  - Osteoporosis [Unknown]
  - Hyperlipidaemia [Unknown]
  - Anaemia postoperative [Unknown]
  - Arthropathy [Unknown]
  - Deafness neurosensory [Unknown]
  - Femur fracture [Unknown]
  - Calcium deficiency [Unknown]
  - Vitamin D deficiency [Unknown]
  - Joint range of motion decreased [Unknown]
  - Hyperuricaemia [Unknown]

NARRATIVE: CASE EVENT DATE: 2005
